FAERS Safety Report 7451525-6 (Version None)
Quarter: 2011Q2

REPORT INFORMATION
  Report Type: 
  Country: None (occurrence: None)
  Receive Date: 20110425
  Receipt Date: 20110408
  Transmission Date: 20111010
  Serious: Yes (Hospitalization, Other)
  Sender: FDA-Public Use
  Company Number: AUR-APU-2011-01247

PATIENT
  Sex: Male

DRUGS (1)
  1. HYDROCHLOROTHIAZIDE [Suspect]
     Indication: HYPERTENSION
     Dosage: 25MG - DAILY
     Dates: end: 20110301

REACTIONS (7)
  - WEIGHT DECREASED [None]
  - POLLAKIURIA [None]
  - BLOOD GLUCOSE INCREASED [None]
  - ASTHENIA [None]
  - DIABETES MELLITUS [None]
  - FEELING ABNORMAL [None]
  - THIRST [None]
